FAERS Safety Report 7586868-9 (Version None)
Quarter: 2011Q2

REPORT INFORMATION
  Report Type: 
  Country: None (occurrence: None)
  Receive Date: 20110603
  Receipt Date: 20110225
  Transmission Date: 20111010
  Serious: Yes (Other)
  Sender: FDA-Public Use
  Company Number: 2011SP009116

PATIENT
  Age: 37 Year
  Sex: Female

DRUGS (1)
  1. SAPHRIS [Suspect]
     Indication: PSYCHOTIC DISORDER
     Dosage: 5 MG;QPM;SL
     Route: 060
     Dates: start: 20110101

REACTIONS (3)
  - UNDERDOSE [None]
  - TARDIVE DYSKINESIA [None]
  - INAPPROPRIATE SCHEDULE OF DRUG ADMINISTRATION [None]
